FAERS Safety Report 6602834-1 (Version None)
Quarter: 2010Q1

REPORT INFORMATION
  Report Type: 
  Country: None (occurrence: None)
  Receive Date: 20100226
  Receipt Date: 20100222
  Transmission Date: 20100710
  Serious: Yes (Death, Hospitalization)
  Sender: FDA-Public Use
  Company Number: US-BIOGENIDEC-2009BI033673

PATIENT
  Age: 48 Year
  Sex: Female
  Weight: 96 kg

DRUGS (24)
  1. AVONEX [Suspect]
     Indication: MULTIPLE SCLEROSIS
     Route: 030
     Dates: start: 20050101
  2. METHOTREXATE [Concomitant]
     Indication: MULTIPLE SCLEROSIS
     Route: 048
  3. METHOTREXATE [Concomitant]
  4. METHOTREXATE [Concomitant]
  5. SYNTHROID [Concomitant]
  6. ATENOLOL [Concomitant]
     Indication: HYPERTENSION
  7. FLUTICASONE PROPIONATE [Concomitant]
     Route: 045
  8. NAPROXEN SODIUM [Concomitant]
  9. GLYCOLAX [Concomitant]
  10. DETROL LA [Concomitant]
  11. SERTRALINE HCL [Concomitant]
  12. MECLIZINE HCL [Concomitant]
  13. NORTRIPTYLINE HCL [Concomitant]
  14. ZOLPIDEM TARTRATE [Concomitant]
  15. COLACE [Concomitant]
  16. AMBIEN [Concomitant]
  17. FOLIC ACID [Concomitant]
  18. OYSTER CALCIUM + D [Concomitant]
  19. ARICEPT [Concomitant]
  20. MILK OF MAGNESIA TAB [Concomitant]
  21. AMLODIPINE BESYLATE [Concomitant]
  22. MIRTAZAPINE [Concomitant]
  23. PROCHLORPERAZINE MALEATE [Concomitant]
  24. TYLENOL-500 [Concomitant]

REACTIONS (15)
  - BLOOD CHOLESTEROL INCREASED [None]
  - CEREBROVASCULAR ACCIDENT [None]
  - COGNITIVE DISORDER [None]
  - CRANIAL NERVE DISORDER [None]
  - DEPRESSED MOOD [None]
  - FALL [None]
  - FATIGUE [None]
  - HYPERTENSION [None]
  - MYOCARDIAL INFARCTION [None]
  - NEUROGENIC BLADDER [None]
  - RASH PRURITIC [None]
  - SLEEP DISORDER [None]
  - VERTIGO [None]
  - VISION BLURRED [None]
  - VITAMIN D DECREASED [None]
